FAERS Safety Report 9812248 (Version 3)
Quarter: 2014Q2

REPORT INFORMATION
  Report Type: Report from Study
  Country: BR (occurrence: BR)
  Receive Date: 20140113
  Receipt Date: 20140502
  Transmission Date: 20141212
  Serious: Yes (Hospitalization, Other)
  Sender: FDA-Public Use
  Company Number: BR-ROCHE-748403

PATIENT
  Sex: Female
  Weight: 56 kg

DRUGS (3)
  1. MABTHERA [Suspect]
     Indication: RHEUMATOID ARTHRITIS
     Dosage: DATE OF LAST INFUSION WAS 19/DEC/2013
     Route: 042
  2. MABTHERA [Suspect]
     Route: 042
  3. AZATHIOPRINE [Concomitant]

REACTIONS (11)
  - Rheumatoid arthritis [Recovered/Resolved]
  - Oral disorder [Recovered/Resolved]
  - Genital lesion [Recovered/Resolved]
  - Weight increased [Not Recovered/Not Resolved]
  - Headache [Recovered/Resolved]
  - Impaired healing [Recovered/Resolved]
  - Decreased immune responsiveness [Unknown]
  - Laceration [Unknown]
  - Wound infection [Recovered/Resolved]
  - Drug dose omission [Unknown]
  - Rheumatoid arthritis [Unknown]
